FAERS Safety Report 10569240 (Version 4)
Quarter: 2015Q2

REPORT INFORMATION
  Report Type: Other
  Country: IT (occurrence: IT)
  Receive Date: 20141106
  Receipt Date: 20150428
  Transmission Date: 20150821
  Serious: Yes (Hospitalization, Other)
  Sender: FDA-Public Use
  Company Number: IT-TAKEDA-2014JNJ006034

PATIENT

DRUGS (8)
  1. VELCADE [Suspect]
     Active Substance: BORTEZOMIB
     Indication: PLASMA CELL MYELOMA
     Dosage: 10.4 MG, UNK
     Route: 058
     Dates: start: 20140613, end: 20141017
  2. ACICLOVIR [Concomitant]
     Active Substance: ACYCLOVIR
     Indication: ANTIVIRAL PROPHYLAXIS
     Dosage: 400 MG, UNK
     Route: 048
  3. BISOPROLOL FUMARATE. [Concomitant]
     Active Substance: BISOPROLOL FUMARATE
     Indication: HYPERURICAEMIA
     Dosage: 10 MG, UNK
     Route: 048
  4. PANTOPRAZOLE [Concomitant]
     Active Substance: PANTOPRAZOLE SODIUM
     Indication: PRODUCT USED FOR UNKNOWN INDICATION
     Dosage: 20 MG, UNK
     Route: 048
  5. ALLOPURINOL. [Concomitant]
     Active Substance: ALLOPURINOL
     Indication: HYPERURICAEMIA
     Dosage: 300 MG, UNK
     Route: 048
  6. THALIDOMIDE [Suspect]
     Active Substance: THALIDOMIDE
     Dosage: 50 MG, UNK
     Route: 048
     Dates: start: 20140805, end: 20140819
  7. THALIDOMIDE [Suspect]
     Active Substance: THALIDOMIDE
     Indication: PLASMA CELL MYELOMA
     Dosage: 50 MG, QD
     Route: 048
     Dates: start: 20140729, end: 20141019
  8. CLEXANE [Concomitant]
     Active Substance: ENOXAPARIN SODIUM
     Indication: ANTICOAGULANT THERAPY
     Dosage: 8000 IU, UNK
     Route: 058

REACTIONS (6)
  - Hypercholesterolaemia [Recovering/Resolving]
  - Dyslipidaemia [Recovering/Resolving]
  - Myocardial infarction [Recovering/Resolving]
  - Blood triglycerides increased [Recovering/Resolving]
  - Chest pain [Recovering/Resolving]
  - Blood glucose abnormal [Recovering/Resolving]

NARRATIVE: CASE EVENT DATE: 20141020
